FAERS Safety Report 15421935 (Version 3)
Quarter: 2019Q3

REPORT INFORMATION
  Report Type: Spontaneous
  Country: US (occurrence: US)
  Receive Date: 20180924
  Receipt Date: 20190926
  Transmission Date: 20191004
  Serious: No
  Sender: FDA-Public Use
  Company Number: US-ACTELION-A-NJ2018-179215

PATIENT
  Sex: Female
  Weight: 82.99 kg

DRUGS (2)
  1. ADCIRCA [Concomitant]
     Active Substance: TADALAFIL
  2. OPSUMIT [Suspect]
     Active Substance: MACITENTAN
     Indication: PULMONARY ARTERIAL HYPERTENSION
     Dosage: 10 MG, QD
     Route: 048

REACTIONS (6)
  - Nausea [Unknown]
  - Presyncope [Unknown]
  - Dizziness [Unknown]
  - Abdominal pain [Unknown]
  - Pulmonary veno-occlusive disease [Unknown]
  - Vomiting [Unknown]
